FAERS Safety Report 11414097 (Version 1)
Quarter: 2015Q3

REPORT INFORMATION
  Report Type: Spontaneous
  Country: AT (occurrence: AT)
  Receive Date: 20150824
  Receipt Date: 20150824
  Transmission Date: 20151125
  Serious: Yes (Other)
  Sender: FDA-Public Use
  Company Number: AT-MYLANLABS-2015M1027808

PATIENT

DRUGS (15)
  1. VINCRISTINE [Suspect]
     Active Substance: VINCRISTINE
     Indication: ATYPICAL TERATOID/RHABDOID TUMOUR OF CNS
     Dosage: 1.5 MG/M2; THREE DOSES PER COURSE; THREE COURSES
     Route: 040
  2. THIOTEPA. [Suspect]
     Active Substance: THIOTEPA
     Indication: ATYPICAL TERATOID/RHABDOID TUMOUR OF CNS
     Dosage: 300 MG/M2
     Route: 065
  3. ETOPOSIDE. [Suspect]
     Active Substance: ETOPOSIDE
     Dosage: DAILY FOR 5 DAYS
     Route: 037
  4. CARBOPLATIN. [Suspect]
     Active Substance: CARBOPLATIN
     Dosage: 500 MG/M2
     Route: 065
  5. ETOPOSIDE. [Suspect]
     Active Substance: ETOPOSIDE
     Indication: ATYPICAL TERATOID/RHABDOID TUMOUR OF CNS
     Dosage: 100 MG/M2, INFUSED OVER 2 HOURS; 3 DOSES PER COURSE; 3 COURSES
     Route: 041
  6. CARBOPLATIN. [Suspect]
     Active Substance: CARBOPLATIN
     Indication: ATYPICAL TERATOID/RHABDOID TUMOUR OF CNS
     Dosage: 500 MG/M2
     Route: 065
  7. MAFOSFAMIDE [Suspect]
     Active Substance: MAFOSFAMIDE LYSINE
     Indication: ATYPICAL TERATOID/RHABDOID TUMOUR OF CNS
     Dosage: 15MG
     Route: 037
  8. DOXORUBICIN [Suspect]
     Active Substance: DOXORUBICIN
     Indication: ATYPICAL TERATOID/RHABDOID TUMOUR OF CNS
     Dosage: 30 MG/M2, INFUSED OVER 24 HOURS; 2 DOSES PER COURSE; 3 COURSES
     Route: 041
  9. IFOSFAMIDE. [Suspect]
     Active Substance: IFOSFAMIDE
     Indication: ATYPICAL TERATOID/RHABDOID TUMOUR OF CNS
     Dosage: 1.5 G/M2, INFUSED OVER 24 HOURS; 5 DOSES PER COURSE; 3 COURSES
     Route: 041
  10. CISPLATIN. [Suspect]
     Active Substance: CISPLATIN
     Indication: ATYPICAL TERATOID/RHABDOID TUMOUR OF CNS
     Dosage: 20 MG/M2, INFUSED OVER 1 HOUR; 5 DOSES PER COURSE; 3 COURSES
     Route: 041
  11. CYCLOPHOSPHAMIDE. [Suspect]
     Active Substance: CYCLOPHOSPHAMIDE
     Indication: ATYPICAL TERATOID/RHABDOID TUMOUR OF CNS
     Dosage: 800 MG/M2, INFUSED OVER 1 HOUR; 3 DOSES PER COURSE; 3 COURSES
     Route: 041
  12. METHOTREXATE [Suspect]
     Active Substance: METHOTREXATE
     Indication: ATYPICAL TERATOID/RHABDOID TUMOUR OF CNS
     Dosage: 5 G/M2, INFUSED OVER 24 HOURS; 2 DOSES PER COURSE; THREE COURSES
     Route: 041
  13. METHOTREXATE [Suspect]
     Active Substance: METHOTREXATE
     Dosage: 2 MG/DAY FOR 4 DAYS WITH MAFOSFAMIDE, THEN WITH CYTARABINE AND ETOPOSIDE
     Route: 037
  14. ETOPOSIDE. [Suspect]
     Active Substance: ETOPOSIDE
     Dosage: 250 MG/M2
     Route: 065
  15. DEPOCYTE [Suspect]
     Active Substance: CYTARABINE
     Indication: ATYPICAL TERATOID/RHABDOID TUMOUR OF CNS
     Route: 037

REACTIONS (1)
  - Sudden hearing loss [Recovered/Resolved]
